FAERS Safety Report 9581039 (Version 2)
Quarter: 2013Q4

REPORT INFORMATION
  Report Type: Spontaneous
  Country: US (occurrence: US)
  Receive Date: 20131002
  Receipt Date: 20131108
  Transmission Date: 20140711
  Serious: Yes (Other)
  Sender: FDA-Public Use
  Company Number: US-PERRIGO-13US010030

PATIENT
  Age: 62 Year
  Sex: Female
  Weight: 61.22 kg

DRUGS (1)
  1. NICOTINE POLACRILEX 4MG MINT COATED 532 [Suspect]
     Indication: SMOKING CESSATION THERAPY
     Dosage: 4 MG EVERY 1 TO 2 HOURS
     Route: 002
     Dates: start: 201307, end: 201308

REACTIONS (3)
  - Chemical burn of respiratory tract [Not Recovered/Not Resolved]
  - Dysphonia [Not Recovered/Not Resolved]
  - Lip blister [Recovered/Resolved]
